FAERS Safety Report 7829093-6 (Version None)
Quarter: 2011Q4

REPORT INFORMATION
  Report Type: 
  Country: None (occurrence: None)
  Receive Date: 20111020
  Receipt Date: 20111004
  Transmission Date: 20120403
  Serious: Yes (Other)
  Sender: FDA-Public Use
  Company Number: US-BAYER-2011-082112

PATIENT
  Age: 41 Year
  Sex: Female
  Weight: 69.932 kg

DRUGS (4)
  1. YASMIN [Suspect]
     Indication: ORAL CONTRACEPTION
     Dosage: UNK
     Dates: start: 20040101, end: 20060320
  2. VALTREX [Concomitant]
     Indication: HERPES ZOSTER
  3. NASONEX [Concomitant]
     Indication: MULTIPLE ALLERGIES
     Dosage: UNK UNK, PRN
  4. CLARITIN [Concomitant]
     Indication: MULTIPLE ALLERGIES
     Dosage: UNK, PRN

REACTIONS (1)
  - DEEP VEIN THROMBOSIS [None]
